FAERS Safety Report 13757877 (Version 9)
Quarter: 2019Q2

REPORT INFORMATION
  Report Type: Spontaneous
  Country: FI (occurrence: FI)
  Receive Date: 20170717
  Receipt Date: 20190604
  Transmission Date: 20190711
  Serious: Yes (Other)
  Sender: FDA-Public Use
  Company Number: FI-LEO PHARMA-245703

PATIENT
  Age: 73 Year
  Sex: Female

DRUGS (14)
  1. SIBICORT [Concomitant]
     Indication: ROSACEA
  2. OTEZLA [Concomitant]
     Active Substance: APREMILAST
     Route: 048
     Dates: start: 2016
  3. BASIC [Concomitant]
     Indication: PRODUCT USED FOR UNKNOWN INDICATION
  4. CORTISONE [Concomitant]
     Active Substance: CORTISONE\HYDROCORTISONE
     Indication: PSORIASIS
  5. KALCIPOS-D [Concomitant]
     Active Substance: CALCIUM CARBONATE\CHOLECALCIFEROL
     Indication: PRODUCT USED FOR UNKNOWN INDICATION
  6. BEPANTHEN [Concomitant]
     Indication: PRODUCT USED FOR UNKNOWN INDICATION
  7. TAR SHAMPOO [Concomitant]
     Indication: PSORIASIS
  8. DAIVOBET [Suspect]
     Active Substance: BETAMETHASONE DIPROPIONATE\CALCIPOTRIENE
     Indication: PSORIASIS
     Dosage: LESS THAN 15 G PER DAY
     Route: 061
     Dates: start: 20170127, end: 20170202
  9. FOSAMAX [Concomitant]
     Active Substance: ALENDRONATE SODIUM
     Indication: OSTEOPOROSIS
     Dosage: CURRENTLY ON HOLD
  10. LINOLA [Concomitant]
     Indication: PSORIASIS
  11. OTEZLA [Concomitant]
     Active Substance: APREMILAST
     Indication: PSORIASIS
     Dates: start: 2016, end: 20170126
  12. KEFEXIN [Concomitant]
     Active Substance: CEPHALEXIN
     Indication: SINUSITIS
  13. OTEZLA [Concomitant]
     Active Substance: APREMILAST
     Dates: start: 20170203
  14. VITAMIN D [Concomitant]
     Active Substance: VITAMIN D NOS
     Indication: PRODUCT USED FOR UNKNOWN INDICATION

REACTIONS (24)
  - Blindness [Not Recovered/Not Resolved]
  - Photophobia [Unknown]
  - Amblyopia [Not Recovered/Not Resolved]
  - Pruritus [Unknown]
  - Osteoporosis [Not Recovered/Not Resolved]
  - Lymphadenopathy [Unknown]
  - Constipation [Not Recovered/Not Resolved]
  - Maculopathy [Not Recovered/Not Resolved]
  - Dysuria [Not Recovered/Not Resolved]
  - Skin exfoliation [Not Recovered/Not Resolved]
  - Fall [Not Recovered/Not Resolved]
  - Diarrhoea [Not Recovered/Not Resolved]
  - Retinal disorder [Not Recovered/Not Resolved]
  - Hip fracture [Not Recovered/Not Resolved]
  - Psoriasis [Not Recovered/Not Resolved]
  - Erythema [Not Recovered/Not Resolved]
  - Intraocular haematoma [Unknown]
  - Dysphagia [Unknown]
  - Nausea [Not Recovered/Not Resolved]
  - Drug ineffective [Unknown]
  - Visual impairment [Unknown]
  - Oral pustule [Unknown]
  - Blister [Unknown]
  - Cataract [Not Recovered/Not Resolved]

NARRATIVE: CASE EVENT DATE: 201701
